FAERS Safety Report 7546567-6 (Version None)
Quarter: 2011Q2

REPORT INFORMATION
  Report Type: 
  Country: None (occurrence: None)
  Receive Date: 20110614
  Receipt Date: 20110606
  Transmission Date: 20111010
  Serious: Yes (Hospitalization)
  Sender: FDA-Public Use
  Company Number: GB-TEVA-285429ISR

PATIENT
  Age: 11 Year
  Sex: Male

DRUGS (2)
  1. TACROLIMUS [Suspect]
     Dosage: PREDOSE CONCENTRATION OF 2 TO 3 MCG/L
  2. PREDNISOLONE [Suspect]
     Dosage: 1 MILLIGRAM;

REACTIONS (2)
  - POST STREPTOCOCCAL GLOMERULONEPHRITIS [None]
  - UPPER RESPIRATORY TRACT INFECTION [None]
